FAERS Safety Report 4711232-7 (Version None)
Quarter: 2005Q3

REPORT INFORMATION
  Report Type: 
  Country: None (occurrence: None)
  Receive Date: 20050708
  Receipt Date: 20050623
  Transmission Date: 20060218
  Serious: Yes (Hospitalization, Other)
  Sender: FDA-Public Use
  Company Number: 2005BI010561

PATIENT
  Age: 34 Year
  Sex: Female

DRUGS (8)
  1. AVONEX [Suspect]
     Indication: MULTIPLE SCLEROSIS
     Dosage: 30 UG; QW; IM
     Route: 030
     Dates: start: 19970101, end: 20030101
  2. AVONEX [Suspect]
     Indication: MULTIPLE SCLEROSIS
     Dosage: 30 UG; QW; IM
     Route: 030
     Dates: start: 20030101
  3. ELAVIL [Concomitant]
  4. BUSPAR [Concomitant]
  5. RITALIN [Concomitant]
  6. KLONOPIN [Concomitant]
  7. PROVIGIL [Concomitant]
  8. SOLU-MEDROL [Concomitant]

REACTIONS (2)
  - BENIGN BREAST NEOPLASM [None]
  - MALIGNANT MELANOMA [None]
